FAERS Safety Report 24540936 (Version 2)
Quarter: 2024Q4

REPORT INFORMATION
  Report Type: Spontaneous
  Country: IN (occurrence: IN)
  Receive Date: 20241023
  Receipt Date: 20241025
  Transmission Date: 20250115
  Serious: Yes (Other)
  Sender: PFIZER
  Company Number: IN-MLMSERVICE-20241011-PI225141-00214-1

PATIENT
  Age: 26 Year
  Sex: Female

DRUGS (1)
  1. MEROPENEM [Suspect]
     Active Substance: MEROPENEM
     Indication: Klebsiella infection
     Dosage: 500 MG IN 100ML INFUSION 8 HOURLY WAS STARTED
     Route: 042

REACTIONS (1)
  - Thrombocytosis [Recovered/Resolved]
